FAERS Safety Report 6947689 (Version 8)
Quarter: 2014Q2

REPORT INFORMATION
  Report Type: Spontaneous
  Country: FI (occurrence: FI)
  Receive Date: 20090320
  Receipt Date: 20140509
  Transmission Date: 20141212
  Serious: Yes (Life-Threatening, Hospitalization, Other)
  Sender: FDA-Public Use
  Company Number: PHHY2009FI08745

PATIENT
  Age: 70 Year
  Sex: Male

DRUGS (10)
  1. GLIVEC [Suspect]
     Indication: CHRONIC MYELOID LEUKAEMIA
     Dosage: 400 MG DAILY
     Route: 048
     Dates: start: 20031220
  2. GLIVEC [Suspect]
     Dosage: 300 MG, BID
     Route: 048
     Dates: start: 200501
  3. GLIVEC [Suspect]
     Dosage: 400 MG, QD
     Dates: start: 200903, end: 20090421
  4. DASATINIB [Suspect]
     Dosage: 50 MG, QD
     Route: 065
     Dates: end: 20090626
  5. RENITEC COMP. [Concomitant]
     Indication: HYPERTONIA
     Dosage: 1 DF, QD
     Route: 048
     Dates: end: 20090626
  6. EMGESAN [Concomitant]
     Indication: MUSCLE SPASMS
     Dosage: 3 DF, DAILY
     Route: 048
     Dates: start: 2006
  7. BURANA [Concomitant]
     Indication: PAIN
     Dosage: 600 MG
     Route: 065
  8. PARACETAMOL [Concomitant]
     Indication: PAIN
     Dosage: UNK UKN, UNK
     Route: 065
  9. KALCIPOS-D [Concomitant]
     Indication: VITAMIN D DEFICIENCY
     Dosage: UNK UKN, UNK
     Dates: start: 20080724
  10. RENITEC [Concomitant]
     Dosage: 20 MG, QD

REACTIONS (21)
  - Congestive cardiomyopathy [Not Recovered/Not Resolved]
  - Cardiac disorder [Unknown]
  - Heart valve incompetence [Not Recovered/Not Resolved]
  - Atrial flutter [Unknown]
  - Cough [Unknown]
  - Swelling [Unknown]
  - Weight increased [Unknown]
  - Gingivitis [Unknown]
  - Polymyositis [Not Recovered/Not Resolved]
  - Myalgia [Recovering/Resolving]
  - Muscular weakness [Not Recovered/Not Resolved]
  - Muscle spasms [Unknown]
  - Weight decreased [Unknown]
  - Muscle necrosis [Unknown]
  - Myopathy [Not Recovered/Not Resolved]
  - Immune-mediated necrotising myopathy [Unknown]
  - Alanine aminotransferase increased [Unknown]
  - Blood creatine phosphokinase increased [Recovering/Resolving]
  - Anxiety [Unknown]
  - Blood lactate dehydrogenase increased [Unknown]
  - Influenza [Unknown]
